FAERS Safety Report 10875334 (Version 2)
Quarter: 2015Q1

REPORT INFORMATION
  Report Type: Spontaneous
  Country: AT (occurrence: AT)
  Receive Date: 20150227
  Receipt Date: 20150320
  Transmission Date: 20150721
  Serious: Yes (Death)
  Sender: FDA-Public Use
  Company Number: AT-ABBVIE-15P-009-1353391-00

PATIENT
  Age: 78 Year
  Sex: Male

DRUGS (1)
  1. DUODOPA [Suspect]
     Active Substance: CARBIDOPA\LEVODOPA
     Indication: PARKINSON^S DISEASE
     Dosage: MD: 10.5 ML?ED: 2.0 ML?CR: 4.5 ML/H
     Route: 065
     Dates: start: 20150112

REACTIONS (1)
  - Death [Fatal]

NARRATIVE: CASE EVENT DATE: 20150227
